FAERS Safety Report 13668023 (Version 2)
Quarter: 2017Q2

REPORT INFORMATION
  Report Type: Spontaneous
  Country: US (occurrence: US)
  Receive Date: 20170620
  Receipt Date: 20170623
  Transmission Date: 20170830
  Serious: Yes (Other)
  Sender: FDA-Public Use
  Company Number: US-PFIZER INC-2017265084

PATIENT
  Age: 58 Year
  Sex: Male
  Weight: 56.7 kg

DRUGS (3)
  1. VENTOLIN [Concomitant]
     Active Substance: ALBUTEROL SULFATE
     Dosage: 180 UG, AS NEEDED
     Dates: start: 2015
  2. CHANTIX [Suspect]
     Active Substance: VARENICLINE TARTRATE
     Indication: SMOKING CESSATION THERAPY
     Dosage: 0.5 MG, 1X/DAY
     Route: 048
     Dates: start: 20170606, end: 20170613
  3. SYMBICORT [Concomitant]
     Active Substance: BUDESONIDE\FORMOTEROL FUMARATE DIHYDRATE
     Indication: ASTHMA
     Dosage: [BUDESONIDE 160]/[FORMOTEROL FUMARATE 4.5], TWO PUFFS, 2X/DAY
     Dates: start: 2015

REACTIONS (8)
  - Somnolence [Recovering/Resolving]
  - Dysphagia [Recovering/Resolving]
  - Pharyngeal oedema [Unknown]
  - Pruritus [Recovered/Resolved]
  - Choking [Unknown]
  - Nausea [Recovered/Resolved]
  - Rash [Recovered/Resolved]
  - Throat irritation [Unknown]

NARRATIVE: CASE EVENT DATE: 201706
